FAERS Safety Report 8533895-0 (Version None)
Quarter: 2012Q3

REPORT INFORMATION
  Report Type: 
  Country: None (occurrence: None)
  Receive Date: 20120724
  Receipt Date: 20120716
  Transmission Date: 20120928
  Serious: Yes (Other)
  Sender: FDA-Public Use
  Company Number: FR-JNJFOC-20120707771

PATIENT
  Age: 25 Year
  Sex: Female

DRUGS (5)
  1. DARUNAVIR ETHANOLATE [Suspect]
     Indication: HIV INFECTION
     Route: 065
     Dates: start: 20070801
  2. RALTEGRAVIR [Suspect]
     Indication: HIV INFECTION
     Route: 065
     Dates: start: 20070801
  3. RITONAVIR [Suspect]
     Indication: HIV INFECTION
     Route: 065
     Dates: start: 20070801
  4. TENOFOVIR [Suspect]
     Indication: HIV INFECTION
     Route: 065
     Dates: start: 20060201
  5. EMTRICITABINE [Suspect]
     Indication: HIV INFECTION
     Route: 065
     Dates: start: 20060201

REACTIONS (4)
  - NEPHROLITHIASIS [None]
  - RENAL COLIC [None]
  - PYELONEPHRITIS [None]
  - ESCHERICHIA URINARY TRACT INFECTION [None]
